FAERS Safety Report 25712468 (Version 2)
Quarter: 2025Q3

REPORT INFORMATION
  Report Type: Report from Study
  Country: US (occurrence: US)
  Receive Date: 20250821
  Receipt Date: 20250924
  Transmission Date: 20251020
  Serious: Yes (Other)
  Sender: ABBVIE
  Company Number: US-ABBVIE-6422834

PATIENT
  Sex: Female

DRUGS (1)
  1. HUMIRA [Suspect]
     Active Substance: ADALIMUMAB
     Indication: Ankylosing spondylitis
     Dosage: CITRATE FREE
     Route: 058
     Dates: start: 2020

REACTIONS (5)
  - Visual impairment [Not Recovered/Not Resolved]
  - Stress [Unknown]
  - Ankylosing spondylitis [Not Recovered/Not Resolved]
  - Brain fog [Unknown]
  - Pain [Unknown]
